FAERS Safety Report 19075193 (Version 1)
Quarter: 2021Q1

REPORT INFORMATION
  Report Type: Spontaneous
  Country: US (occurrence: US)
  Receive Date: 20210330
  Receipt Date: 20210330
  Transmission Date: 20210420
  Serious: Yes (Other)
  Sender: FDA-Public Use
  Company Number: US-ROCHE-2550023

PATIENT
  Sex: Male
  Weight: 81.72 kg

DRUGS (2)
  1. ERIVEDGE [Suspect]
     Active Substance: VISMODEGIB
     Indication: BASAL CELL CARCINOMA
  2. ERIVEDGE [Suspect]
     Active Substance: VISMODEGIB
     Indication: SKIN CANCER
     Dosage: DAILY
     Route: 048
     Dates: start: 20190926, end: 20200316

REACTIONS (2)
  - Hypogeusia [Not Recovered/Not Resolved]
  - Alopecia [Unknown]
